FAERS Safety Report 26102525 (Version 1)
Quarter: 2025Q4

REPORT INFORMATION
  Report Type: Report from Study
  Country: CA (occurrence: CA)
  Receive Date: 20251128
  Receipt Date: 20251128
  Transmission Date: 20260118
  Serious: Yes (Other)
  Sender: BIOGEN
  Company Number: CA-BIOGEN-2023BI01200232

PATIENT
  Age: 53 Year
  Sex: Male

DRUGS (1)
  1. TECFIDERA [Suspect]
     Active Substance: DIMETHYL FUMARATE
     Indication: Multiple sclerosis
     Dates: start: 20131130

REACTIONS (3)
  - Renal cell carcinoma [Unknown]
  - Lymphocyte count decreased [Unknown]
  - White blood cell count decreased [Recovered/Resolved]

NARRATIVE: CASE EVENT DATE: 20230413
